FAERS Safety Report 18336081 (Version 1)
Quarter: 2020Q4

REPORT INFORMATION
  Report Type: Spontaneous
  Country: US (occurrence: US)
  Receive Date: 20201001
  Receipt Date: 20201001
  Transmission Date: 20210113
  Serious: Yes (Hospitalization)
  Sender: FDA-Public Use
  Company Number: US-ELI_LILLY_AND_COMPANY-US202009010524

PATIENT
  Age: 58 Year
  Sex: Female

DRUGS (1)
  1. HUMULIN R [Suspect]
     Active Substance: INSULIN HUMAN
     Indication: TYPE 1 DIABETES MELLITUS
     Dosage: 200 U, DAILY
     Route: 058

REACTIONS (8)
  - Sepsis [Recovered/Resolved]
  - Gastrointestinal ulcer [Recovering/Resolving]
  - Diabetic ketoacidosis [Recovered/Resolved]
  - Gastrointestinal fistula [Recovering/Resolving]
  - Gastrointestinal fistula [Recovering/Resolving]
  - Sepsis [Recovered/Resolved]
  - Pelvic abscess [Recovering/Resolving]
  - Diabetic ketoacidosis [Recovered/Resolved]

NARRATIVE: CASE EVENT DATE: 201912
